FAERS Safety Report 7324206-7 (Version None)
Quarter: 2011Q1

REPORT INFORMATION
  Report Type: 
  Country: None (occurrence: None)
  Receive Date: 20110301
  Receipt Date: 20110223
  Transmission Date: 20110831
  Serious: Yes (Death, Hospitalization, Other)
  Sender: FDA-Public Use
  Company Number: US-PFIZER INC-2011032639

PATIENT
  Sex: Male

DRUGS (1)
  1. XALATAN [Suspect]
     Indication: GLAUCOMA
     Dosage: 2 GTT, 1X/DAY
     Route: 047

REACTIONS (3)
  - THROMBOSIS [None]
  - LUNG DISORDER [None]
  - AORTIC VALVE REPLACEMENT [None]
